FAERS Safety Report 7624053-2 (Version None)
Quarter: 2011Q3

REPORT INFORMATION
  Report Type: 
  Country: None (occurrence: None)
  Receive Date: 20110712
  Receipt Date: 20110627
  Transmission Date: 20111222
  Serious: Yes (Death)
  Sender: FDA-Public Use
  Company Number: OPER20110154

PATIENT
  Age: 32 Year
  Sex: Male
  Weight: 106.1417 kg

DRUGS (3)
  1. HYDROCODONE (HYDROCODONE) [Suspect]
     Indication: PRODUCT USED FOR UNKNOWN INDICATION
  2. ALPRAZOLAM [Suspect]
     Indication: PRODUCT USED FOR UNKNOWN INDICATION
  3. OPANA ER [Suspect]
     Indication: PRODUCT USED FOR UNKNOWN INDICATION

REACTIONS (6)
  - PULMONARY OEDEMA [None]
  - CHOLECYSTITIS CHRONIC [None]
  - HEPATIC STEATOSIS [None]
  - POISONING [None]
  - PULMONARY CONGESTION [None]
  - CHOLELITHIASIS [None]
